FAERS Safety Report 24911301 (Version 1)
Quarter: 2025Q1

REPORT INFORMATION
  Report Type: Spontaneous
  Country: US (occurrence: US)
  Receive Date: 20250131
  Receipt Date: 20250131
  Transmission Date: 20250409
  Serious: Yes (Other)
  Sender: NOVO NORDISK
  Company Number: US-NOVOPROD-803641

PATIENT
  Age: 78 Year
  Sex: Male

DRUGS (5)
  1. NOVOLIN R [Suspect]
     Active Substance: INSULIN HUMAN
     Route: 058
  2. NOVOLIN R [Suspect]
     Active Substance: INSULIN HUMAN
     Indication: Diabetes mellitus
     Route: 058
  3. NOVOLIN N [Concomitant]
     Active Substance: INSULIN HUMAN
     Indication: Diabetes mellitus
     Route: 058
  4. NOVOLIN R [Concomitant]
     Active Substance: INSULIN HUMAN
     Indication: Diabetes mellitus
     Route: 058
  5. NOVOLIN R [Concomitant]
     Active Substance: INSULIN HUMAN
     Route: 058

REACTIONS (6)
  - Renal cancer [Unknown]
  - Blood glucose increased [Recovered/Resolved]
  - Glycosylated haemoglobin increased [Not Recovered/Not Resolved]
  - Hypoacusis [Unknown]
  - Weight increased [Unknown]
  - Drug ineffective [Not Recovered/Not Resolved]
